FAERS Safety Report 5656971-9 (Version None)
Quarter: 2008Q1

REPORT INFORMATION
  Report Type: 
  Country: None (occurrence: None)
  Receive Date: 20080310
  Receipt Date: 20080306
  Transmission Date: 20080703
  Serious: Yes (Death, Life-Threatening, Hospitalization)
  Sender: FDA-Public Use
  Company Number: B0504174A

PATIENT
  Age: 85 Year
  Sex: Female
  Weight: 44 kg

DRUGS (15)
  1. VALTREX [Suspect]
     Indication: HERPES ZOSTER
     Dosage: 1000MG THREE TIMES PER DAY
     Route: 048
     Dates: start: 20071227, end: 20071229
  2. SERMION [Suspect]
     Indication: DRUG USE FOR UNKNOWN INDICATION
     Dosage: 5MG TWICE PER DAY
     Route: 048
     Dates: start: 20071128
  3. TOLEDOMIN [Suspect]
     Indication: DEPRESSION
     Dosage: 25MG PER DAY
     Route: 048
     Dates: start: 20071128
  4. MAGLAX [Concomitant]
     Indication: CONSTIPATION
     Dosage: 1320MG PER DAY
     Route: 048
     Dates: end: 20071230
  5. UNKNOWN DRUG [Concomitant]
     Indication: GASTRIC ULCER
     Dosage: 20MG PER DAY
     Route: 048
     Dates: end: 20071230
  6. TOWARAT L [Concomitant]
     Indication: HYPERTENSION
     Dosage: 40MG PER DAY
     Route: 048
     Dates: end: 20071230
  7. SPIRONOLACTONE [Concomitant]
     Indication: POLYURIA
     Dosage: 25MG PER DAY
     Route: 048
     Dates: end: 20071230
  8. UNKNOWN DRUG [Concomitant]
     Dosage: 81MG PER DAY
     Route: 048
     Dates: end: 20071230
  9. UNKNOWN DRUG [Concomitant]
     Indication: VOMITING
     Dosage: 5MG PER DAY
     Route: 048
     Dates: end: 20071230
  10. PERORIC [Concomitant]
     Indication: NAUSEA
     Route: 048
  11. ETICALM [Concomitant]
     Indication: INSOMNIA
     Dosage: .5MG PER DAY
     Route: 048
     Dates: end: 20071230
  12. CHINESE MEDICINE [Concomitant]
     Dosage: 5G PER DAY
     Route: 048
     Dates: start: 20071227
  13. CHINESE MEDICINE [Concomitant]
     Indication: VOMITING
     Route: 048
     Dates: end: 20071230
  14. AZULENE [Concomitant]
     Indication: HERPES ZOSTER
     Route: 061
     Dates: start: 20071227, end: 20071230
  15. GENTACIN [Concomitant]
     Indication: HERPES ZOSTER
     Route: 061
     Dates: start: 20071227, end: 20071230

REACTIONS (13)
  - ALTERED STATE OF CONSCIOUSNESS [None]
  - ASTHENIA [None]
  - BLOOD CREATININE INCREASED [None]
  - BLOOD POTASSIUM INCREASED [None]
  - BLOOD UREA INCREASED [None]
  - DEHYDRATION [None]
  - EATING DISORDER [None]
  - HYPERKALAEMIA [None]
  - HYPOKINESIA [None]
  - RASH [None]
  - RENAL FAILURE [None]
  - RESPIRATORY ARREST [None]
  - VOMITING [None]
